FAERS Safety Report 4354574-X (Version None)
Quarter: 2004Q2

REPORT INFORMATION
  Report Type: 
  Country: None (occurrence: None)
  Receive Date: 20040503
  Receipt Date: 20040420
  Transmission Date: 20050107
  Serious: Yes (Hospitalization)
  Sender: FDA-Public Use
  Company Number: 2004-01673

PATIENT
  Age: 41 Year
  Sex: Male
  Weight: 76.2 kg

DRUGS (2)
  1. CLINDAMYCIN HYDROCHLORIDE [Suspect]
     Indication: ORAL INFECTION
     Dosage: 1 CAPSUL, BID, ORAL
     Route: 048
     Dates: start: 20021101
  2. CENTRRUM (MINERALS) [Concomitant]

REACTIONS (9)
  - ANAEMIA [None]
  - ANAL FISTULA [None]
  - ASTHENIA [None]
  - CROHN'S DISEASE [None]
  - DIARRHOEA HAEMORRHAGIC [None]
  - PROCTALGIA [None]
  - PYREXIA [None]
  - REFUSAL OF TREATMENT BY PATIENT [None]
  - SWELLING [None]
